FAERS Safety Report 5471212-3 (Version None)
Quarter: 2007Q3

REPORT INFORMATION
  Report Type: 
  Country: None (occurrence: None)
  Receive Date: 20070928
  Receipt Date: 20070731
  Transmission Date: 20080115
  Serious: No
  Sender: FDA-Public Use
  Company Number: A0667323A

PATIENT
  Age: 24 Year
  Sex: Male

DRUGS (3)
  1. FLOVENT [Suspect]
     Route: 048
     Dates: start: 20070724
  2. NEXIUM [Concomitant]
  3. ALLEGRA D 24 HOUR [Concomitant]

REACTIONS (1)
  - ABDOMINAL PAIN UPPER [None]
